FAERS Safety Report 6572339-5 (Version None)
Quarter: 2010Q1

REPORT INFORMATION
  Report Type: 
  Country: None (occurrence: None)
  Receive Date: 20100201
  Receipt Date: 20100118
  Transmission Date: 20100710
  Serious: Yes (Other)
  Sender: FDA-Public Use
  Company Number: AMAG201000036

PATIENT
  Sex: Female

DRUGS (1)
  1. FERAHEME [Suspect]
     Indication: IRON DEFICIENCY ANAEMIA
     Dosage: 5 ML, SINGLE (150 MG), INTRAVENOUS
     Route: 042
     Dates: start: 20100118, end: 20100118

REACTIONS (4)
  - DIZZINESS [None]
  - DYSPNOEA [None]
  - EYE ROLLING [None]
  - HEART RATE INCREASED [None]
